FAERS Safety Report 8141251-2 (Version None)
Quarter: 2012Q1

REPORT INFORMATION
  Report Type: 
  Country: None (occurrence: None)
  Receive Date: 20120216
  Receipt Date: 20120207
  Transmission Date: 20120608
  Serious: Yes (Hospitalization)
  Sender: FDA-Public Use
  Company Number: NL-PFIZER INC-2012032813

PATIENT
  Age: 51 Year
  Sex: Male
  Weight: 83 kg

DRUGS (6)
  1. DEXAMETHASONE [Concomitant]
     Dosage: 1.5 MG, 1X/DAY
     Route: 048
     Dates: start: 20120102
  2. LEVETIRACETAM [Concomitant]
     Indication: EPILEPSY
     Dosage: 500 MG, 2X/DAY
     Route: 048
     Dates: start: 20111019
  3. DEXAMETHASONE [Concomitant]
     Dosage: 1.5 MG, 2X/DAY
     Route: 048
     Dates: start: 20111231
  4. DEXAMETHASONE [Concomitant]
     Dosage: 0.5 MG, 1X/DAY
     Route: 048
     Dates: start: 20120118
  5. PARACETAMOL [Concomitant]
     Indication: HEADACHE
     Dosage: UNK
     Route: 048
     Dates: start: 20120125
  6. TEMSIROLIMUS [Suspect]
     Indication: GLIOBLASTOMA
     Dosage: 225 MG, WEEKLY
     Route: 048
     Dates: start: 20111123, end: 20120201

REACTIONS (1)
  - BRADYCARDIA [None]
